FAERS Safety Report 25466056 (Version 1)
Quarter: 2025Q2

REPORT INFORMATION
  Report Type: Spontaneous
  Country: TR (occurrence: TR)
  Receive Date: 20250623
  Receipt Date: 20250623
  Transmission Date: 20250717
  Serious: Yes (Other)
  Sender: ROCHE
  Company Number: TR-002147023-NVSC2025TR098507

PATIENT
  Age: 9 Year
  Sex: Male

DRUGS (1)
  1. XOLAIR [Suspect]
     Active Substance: OMALIZUMAB
     Indication: Food allergy
     Dosage: UNK, Q2W, STRENGTH 150  MILLIGRAM PER MILLILITRE
     Route: 065

REACTIONS (3)
  - Angina pectoris [Unknown]
  - Off label use [Unknown]
  - Chest pain [Unknown]
